FAERS Safety Report 10675009 (Version 2)
Quarter: 2015Q1

REPORT INFORMATION
  Report Type: Spontaneous
  Country: US (occurrence: US)
  Receive Date: 20141224
  Receipt Date: 20150128
  Transmission Date: 20150720
  Serious: Yes (Other)
  Sender: FDA-Public Use
  Company Number: US-JNJFOC-20141210306

PATIENT
  Sex: Female
  Weight: 79.38 kg

DRUGS (1)
  1. ELMIRON [Suspect]
     Active Substance: PENTOSAN POLYSULFATE SODIUM
     Indication: PRODUCT USED FOR UNKNOWN INDICATION
     Route: 048
     Dates: end: 201202

REACTIONS (3)
  - Arrhythmia [Recovered/Resolved]
  - Cardiac valve disease [Not Recovered/Not Resolved]
  - Hypertension [Recovered/Resolved]
